FAERS Safety Report 8774737 (Version 1)
Quarter: 2012Q4

REPORT INFORMATION
  Report Type: 
  Country: BR (occurrence: BR)
  Receive Date: 20120910
  Receipt Date: 20120910
  Transmission Date: 20130627
  Serious: Yes (Other)
  Sender: FDA-Public Use
  Company Number: BR-AMGEN-BRASP2012056484

PATIENT
  Age: 38 Year
  Sex: Male
  Weight: 45 kg

DRUGS (6)
  1. ENBREL [Suspect]
     Indication: PSORIASIS
     Dosage: 50 mg, once weekly
     Route: 058
     Dates: start: 20120721
  2. ATENOLOL [Concomitant]
     Indication: BLOOD PRESSURE
     Dosage: 25 mg, 1x/day
     Dates: start: 1997
  3. CALCIUM CARBONATE [Concomitant]
     Indication: HAEMODIALYSIS
     Dosage: UNK
  4. COMPLEX B [Concomitant]
     Dosage: UNK
  5. FOLIC ACID [Concomitant]
     Dosage: 5 mg, UNK
  6. CALCITRIOL [Concomitant]
     Dosage: 4 tablets (unspecified dosage) 1x/day

REACTIONS (4)
  - Immunosuppression [Unknown]
  - Feeding disorder [Unknown]
  - Dry mouth [Unknown]
  - Aphthous stomatitis [Unknown]
